FAERS Safety Report 4383769-4 (Version None)
Quarter: 2004Q2

REPORT INFORMATION
  Report Type: 
  Country: None (occurrence: None)
  Receive Date: 20040623
  Receipt Date: 20040526
  Transmission Date: 20050107
  Serious: Yes (Other)
  Sender: FDA-Public Use
  Company Number: FR-MERCK-0405FRA00088

PATIENT
  Age: 72 Year
  Sex: Female

DRUGS (5)
  1. ACETAMINOPHEN AND CAFFEINE AND PROPOXYPHENE HYDROCHLORIDE [Suspect]
     Indication: PAIN
     Route: 048
     Dates: start: 20040526, end: 20040526
  2. FOSAMAX [Suspect]
     Indication: OSTEOPOROSIS
     Route: 048
     Dates: start: 19970101, end: 19990101
  3. FOSAMAX [Suspect]
     Route: 048
     Dates: start: 20040421, end: 20040526
  4. METOPROLOL TARTRATE [Concomitant]
     Indication: HYPERTENSION
     Route: 048
  5. PROPAFENONE HYDROCHLORIDE [Concomitant]
     Indication: ARRHYTHMIA
     Route: 048

REACTIONS (3)
  - DIZZINESS [None]
  - PAIN [None]
  - TONGUE OEDEMA [None]
